FAERS Safety Report 5805402-4 (Version None)
Quarter: 2008Q3

REPORT INFORMATION
  Report Type: 
  Country: None (occurrence: None)
  Receive Date: 20080709
  Receipt Date: 20080709
  Transmission Date: 20090109
  Serious: Yes (Death, Life-Threatening, Hospitalization)
  Sender: FDA-Public Use
  Company Number: None

PATIENT
  Age: 41 Year
  Sex: Female
  Weight: 116.5744 kg

DRUGS (2)
  1. TREANDA [Suspect]
     Indication: B-CELL LYMPHOMA
     Dosage: 200MG (90MG/M2) DAY 1 + 2 IV
     Route: 042
     Dates: start: 20080424
  2. TREANDA [Suspect]
     Indication: B-CELL LYMPHOMA
     Dosage: 200MG (90MG/M2) DAY 1 + 2 IV
     Route: 042
     Dates: start: 20080425

REACTIONS (6)
  - ANAEMIA [None]
  - FEBRILE NEUTROPENIA [None]
  - HYPOXIA [None]
  - LUNG INFILTRATION [None]
  - METABOLIC DISORDER [None]
  - PERICARDIAL EFFUSION [None]
